FAERS Safety Report 7763133 (Version 7)
Quarter: 2013Q2

REPORT INFORMATION
  Report Type: Spontaneous
  Country: US (occurrence: US)
  Receive Date: 20110118
  Receipt Date: 20130402
  Transmission Date: 20140414
  Serious: Yes (Hospitalization, Other)
  Sender: FDA-Public Use
  Company Number: US-BAYER-2011-004757

PATIENT
  Age: 29 Year
  Sex: Female
  Weight: 61 kg

DRUGS (14)
  1. YAZ [Suspect]
     Dosage: UNK
     Dates: start: 20070130, end: 20070610
  2. YASMIN [Suspect]
     Indication: OLIGOMENORRHOEA
     Dosage: UNK
     Dates: start: 20070611, end: 20080308
  3. YASMIN [Suspect]
     Indication: CONTRACEPTION
  4. KLONOPIN [Concomitant]
     Indication: AGITATION
     Dosage: 0.5 MG, BID
     Route: 048
  5. KLONOPIN [Concomitant]
     Indication: INSOMNIA
     Dosage: 2 MG, HS
  6. ATENOLOL [Concomitant]
     Dosage: 25 MG, UNK
     Dates: start: 2007
  7. CLINDAMYCIN [Concomitant]
     Indication: BACTERIAL INFECTION
  8. ZANTAC [Concomitant]
  9. PROZAC [Concomitant]
  10. XANAX [Concomitant]
     Indication: ANXIETY
     Dosage: 0.75 MG THREE TO FIVE TIMES A DAY
     Dates: start: 20080122, end: 20120215
  11. XANAX [Concomitant]
     Indication: ANXIETY
     Dosage: 0.5 MG TWO TO THREE TIMES A DAY
     Dates: start: 20080222, end: 20080228
  12. LITHIUM CARBONATE [Concomitant]
     Indication: AFFECTIVE DISORDER
     Dosage: 300 MG, EVERY DAY
  13. ZOLOFT [Concomitant]
     Dosage: UNK
     Dates: start: 20080320
  14. NORTRIPTYLINE [Concomitant]
     Dosage: 10 MG, Q BEDTIME
     Route: 048

REACTIONS (5)
  - Pulmonary embolism [Recovering/Resolving]
  - Thrombosis [Unknown]
  - Pain [Recovering/Resolving]
  - Emotional distress [Recovering/Resolving]
  - Anxiety [Recovering/Resolving]
